FAERS Safety Report 10651656 (Version 1)
Quarter: 2014Q4

REPORT INFORMATION
  Report Type: Spontaneous
  Country: US (occurrence: US)
  Receive Date: 20141215
  Receipt Date: 20141215
  Transmission Date: 20150529
  Serious: Yes (Other)
  Sender: FDA-Public Use
  Company Number: US-RB-071037-14

PATIENT
  Age: 51 Year
  Sex: Male

DRUGS (1)
  1. MUCINEX [Suspect]
     Active Substance: GUAIFENESIN
     Indication: PRODUCT USED FOR UNKNOWN INDICATION
     Dosage: TOOK 2 IN TOTAL LAST WINTER TAKING IN THE MORNING AND AFTERNOON
     Route: 065

REACTIONS (3)
  - Facial pain [Recovered/Resolved]
  - Headache [Recovered/Resolved]
  - Ear haemorrhage [Recovered/Resolved]
